FAERS Safety Report 5504321-0 (Version None)
Quarter: 2007Q4

REPORT INFORMATION
  Report Type: 
  Country: None (occurrence: None)
  Receive Date: 20071101
  Receipt Date: 20071022
  Transmission Date: 20080405
  Serious: Yes (Hospitalization)
  Sender: FDA-Public Use
  Company Number: US-ABBOTT-07P-163-0356945-00

PATIENT
  Sex: Female
  Weight: 72.64 kg

DRUGS (10)
  1. HUMIRA [Suspect]
     Indication: RHEUMATOID ARTHRITIS
     Route: 058
     Dates: start: 20050101, end: 20070123
  2. HUMIRA [Suspect]
     Indication: PROSTATIC SPECIFIC ANTIGEN
  3. HUMIRA [Suspect]
     Indication: PSORIASIS
  4. METHOTREXATE [Suspect]
     Indication: RHEUMATOID ARTHRITIS
     Dates: end: 20070101
  5. METHOTREXATE [Suspect]
     Indication: PROSTATIC SPECIFIC ANTIGEN
  6. METHOTREXATE [Suspect]
     Indication: PSORIASIS
  7. VICODIN [Concomitant]
     Indication: PAIN
  8. ALPRAZOLAM [Concomitant]
     Indication: DRUG USE FOR UNKNOWN INDICATION
  9. CITALOPRAM HYDROBROMIDE [Concomitant]
     Indication: DRUG USE FOR UNKNOWN INDICATION
  10. ESOMEPRAZOLE MAGNESIUM [Concomitant]
     Indication: DRUG USE FOR UNKNOWN INDICATION

REACTIONS (9)
  - BACK PAIN [None]
  - HYPOAESTHESIA [None]
  - OSTEOARTHRITIS [None]
  - PARAESTHESIA [None]
  - PARALYSIS [None]
  - PSORIASIS [None]
  - SPINAL CORD OEDEMA [None]
  - UNEVALUABLE EVENT [None]
  - URINARY INCONTINENCE [None]
